FAERS Safety Report 9058861 (Version 2)
Quarter: 2013Q1

REPORT INFORMATION
  Report Type: Spontaneous
  Country: CZ (occurrence: CZ)
  Receive Date: 20130204
  Receipt Date: 20130222
  Transmission Date: 20140127
  Serious: Yes (Other)
  Sender: FDA-Public Use
  Company Number: CZ-ROCHE-1186386

PATIENT
  Age: 47 None
  Sex: Male
  Weight: 88 kg

DRUGS (4)
  1. ROACTEMRA [Suspect]
     Indication: RHEUMATOID ARTHRITIS
     Route: 042
     Dates: start: 20120504, end: 201301
  2. PREDNISONE [Concomitant]
     Indication: RHEUMATOID ARTHRITIS
     Route: 048
  3. ORTANOL [Concomitant]
     Route: 048
  4. CALCICHEW [Concomitant]
     Route: 048

REACTIONS (1)
  - Adenocarcinoma gastric [Not Recovered/Not Resolved]
